FAERS Safety Report 8957098 (Version 4)
Quarter: 2015Q1

REPORT INFORMATION
  Report Type: Spontaneous
  Country: FR (occurrence: FR)
  Receive Date: 20121211
  Receipt Date: 20150128
  Transmission Date: 20150721
  Serious: Yes (Other)
  Sender: FDA-Public Use
  Company Number: FR-ROCHE-1165923

PATIENT
  Age: 62 Year
  Sex: Male

DRUGS (1)
  1. ZELBORAF [Suspect]
     Active Substance: VEMURAFENIB
     Indication: METASTATIC MALIGNANT MELANOMA
     Route: 065

REACTIONS (6)
  - Keratoacanthoma [Unknown]
  - Squamous cell carcinoma [Unknown]
  - Transient acantholytic dermatosis [Recovering/Resolving]
  - Arthralgia [Unknown]
  - Photosensitivity reaction [Unknown]
  - Skin papilloma [Unknown]
